FAERS Safety Report 9646175 (Version 1)
Quarter: 2013Q4

REPORT INFORMATION
  Report Type: Spontaneous
  Country: US (occurrence: US)
  Receive Date: 20131025
  Receipt Date: 20131025
  Transmission Date: 20140711
  Serious: Yes (Hospitalization)
  Sender: FDA-Public Use
  Company Number: US-ELI_LILLY_AND_COMPANY-US201310007746

PATIENT
  Sex: Female

DRUGS (2)
  1. HUMATROPE [Suspect]
     Indication: GROWTH HORMONE DEFICIENCY
     Dosage: 0.25 MG, QD
     Route: 065
  2. HUMATROPE [Suspect]
     Dosage: 0.20 MG, QD
     Route: 065

REACTIONS (11)
  - Adrenal disorder [Unknown]
  - Influenza [Unknown]
  - Diarrhoea [Unknown]
  - Feeling abnormal [Unknown]
  - Confusional state [Unknown]
  - Lethargy [Unknown]
  - Fatigue [Unknown]
  - Asthenia [Unknown]
  - Insomnia [Unknown]
  - Headache [Unknown]
  - Blood oestrogen decreased [Unknown]
